FAERS Safety Report 8505942-3 (Version None)
Quarter: 2012Q3

REPORT INFORMATION
  Report Type: 
  Country: None (occurrence: None)
  Receive Date: 20120712
  Receipt Date: 20120703
  Transmission Date: 20120928
  Serious: Yes (Death)
  Sender: FDA-Public Use
  Company Number: US-GLAXOSMITHKLINE-A0818219A

PATIENT
  Age: 50 Year
  Sex: Male

DRUGS (1)
  1. AVANDIA [Suspect]
     Indication: BLOOD GLUCOSE INCREASED
     Route: 065
     Dates: start: 20070115, end: 20070215

REACTIONS (3)
  - CARDIOGENIC SHOCK [None]
  - CARDIAC FAILURE [None]
  - MYOCARDIAL INFARCTION [None]
